FAERS Safety Report 8776847 (Version 1)
Quarter: 2012Q4

REPORT INFORMATION
  Report Type: 
  Country: US (occurrence: US)
  Receive Date: 20120911
  Receipt Date: 20120911
  Transmission Date: 20130627
  Serious: Yes (Other)
  Sender: FDA-Public Use
  Company Number: US-VERTEX PHARMACEUTICAL INC.-AE-2012-004437

PATIENT

DRUGS (3)
  1. INCIVEK [Suspect]
     Indication: HEPATITIS C
     Dosage: UNK
     Route: 048
     Dates: start: 201203, end: 201203
  2. PEGASYS [Concomitant]
     Indication: HEPATITIS C
  3. COPEGUS [Concomitant]
     Indication: HEPATITIS C

REACTIONS (1)
  - Hepatic encephalopathy [Unknown]
